FAERS Safety Report 15868488 (Version 1)
Quarter: 2019Q1

REPORT INFORMATION
  Report Type: Spontaneous
  Country: SE (occurrence: SE)
  Receive Date: 20190125
  Receipt Date: 20190125
  Transmission Date: 20190417
  Serious: Yes (Death)
  Sender: FDA-Public Use
  Company Number: SE-ANIPHARMA-2019-SE-000002

PATIENT
  Age: 73 Year
  Sex: Male

DRUGS (1)
  1. BICALUTAMIDE. [Suspect]
     Active Substance: BICALUTAMIDE
     Indication: PROSTATE CANCER
     Dosage: ^150^ ENHET SAKNAS 1X1
     Route: 048
     Dates: start: 201811, end: 20181101

REACTIONS (2)
  - Acute hepatic failure [Fatal]
  - Death [Fatal]

NARRATIVE: CASE EVENT DATE: 201811
